FAERS Safety Report 7434557-3 (Version None)
Quarter: 2011Q2

REPORT INFORMATION
  Report Type: 
  Country: None (occurrence: None)
  Receive Date: 20110420
  Receipt Date: 20110420
  Transmission Date: 20111010
  Serious: Yes (Life-Threatening, Hospitalization)
  Sender: FDA-Public Use
  Company Number: None

PATIENT
  Age: 80 Year
  Sex: Male
  Weight: 48 kg

DRUGS (3)
  1. BENADRYL [Concomitant]
  2. ACETAMINOPHEN [Concomitant]
  3. INFED [Suspect]
     Indication: ANAEMIA
     Dosage: 100 MG TEST DOSE ONE-TIME IV DRIP
     Route: 041
     Dates: start: 20110412, end: 20110412

REACTIONS (7)
  - DISSEMINATED INTRAVASCULAR COAGULATION [None]
  - HYPOTENSION [None]
  - DYSPNOEA [None]
  - RESPIRATORY ARREST [None]
  - BRADYCARDIA [None]
  - HYPERSENSITIVITY [None]
  - RESPIRATORY DISTRESS [None]
